FAERS Safety Report 9443534 (Version 2)
Quarter: 2019Q2

REPORT INFORMATION
  Report Type: Spontaneous
  Country: US (occurrence: US)
  Receive Date: 20130806
  Receipt Date: 20190430
  Transmission Date: 20190711
  Serious: No
  Sender: FDA-Public Use
  Company Number: US-PFIZER INC-2013226951

PATIENT
  Age: 59 Year
  Sex: Female

DRUGS (4)
  1. CELEBREX [Suspect]
     Active Substance: CELECOXIB
     Dosage: UNK
  2. ACETAMINOPHEN. [Suspect]
     Active Substance: ACETAMINOPHEN
     Dosage: UNK
  3. TYLENOL [Suspect]
     Active Substance: ACETAMINOPHEN
     Dosage: UNK
  4. BUFFERED ASPIRIN [Suspect]
     Active Substance: ASPIRIN
     Dosage: UNK

REACTIONS (1)
  - Drug hypersensitivity [Unknown]
